FAERS Safety Report 12885815 (Version 2)
Quarter: 2016Q4

REPORT INFORMATION
  Report Type: Spontaneous
  Country: AR (occurrence: AR)
  Receive Date: 20161026
  Receipt Date: 20161102
  Transmission Date: 20170207
  Serious: Yes (Other)
  Sender: FDA-Public Use
  Company Number: AR-NOVOPROD-515548

PATIENT
  Age: 13 Year
  Sex: Male
  Weight: 57 kg

DRUGS (5)
  1. TESTOVIRON                         /00103102/ [Concomitant]
     Indication: SECONDARY HYPOGONADISM
     Dosage: 50 MG/MONTH
  2. DESMOPRESSIN [Concomitant]
     Active Substance: DESMOPRESSIN
     Indication: DIABETES INSIPIDUS
     Dosage: 0.10 MG, QD
     Route: 048
  3. NORDITROPIN [Suspect]
     Active Substance: SOMATROPIN
     Indication: HYPOPITUITARISM
     Dosage: 1.30 MG, QD
     Route: 058
     Dates: start: 201403, end: 20160927
  4. LEVOTHYROXINE. [Concomitant]
     Active Substance: LEVOTHYROXINE
     Indication: HYPOTHYROIDISM
     Dosage: 75 ?G, QD
     Route: 048
  5. HYDROCORTISONE. [Concomitant]
     Active Substance: HYDROCORTISONE
     Indication: SECONDARY ADRENOCORTICAL INSUFFICIENCY
     Dosage: 17.50 MG, QD
     Route: 048

REACTIONS (2)
  - Neoplasm recurrence [Unknown]
  - Craniopharyngioma [Unknown]

NARRATIVE: CASE EVENT DATE: 201609
